FAERS Safety Report 7110965-5 (Version None)
Quarter: 2010Q4

REPORT INFORMATION
  Report Type: 
  Country: None (occurrence: None)
  Receive Date: 20101118
  Receipt Date: 20101108
  Transmission Date: 20110411
  Serious: Yes (Other)
  Sender: FDA-Public Use
  Company Number: CA-JNJFOC-20101104241

PATIENT
  Age: 9 Year
  Sex: Male
  Weight: 38.56 kg

DRUGS (2)
  1. CHILDREN'S TYLENOL SUSPENSION [Suspect]
     Route: 048
  2. CHILDREN'S TYLENOL SUSPENSION [Suspect]
     Indication: PYREXIA
     Dosage: TOTAL OF 3 DOSES
     Route: 048

REACTIONS (10)
  - ALTERED VISUAL DEPTH PERCEPTION [None]
  - CHILLS [None]
  - DIZZINESS [None]
  - FEELING ABNORMAL [None]
  - FLUSHING [None]
  - HALLUCINATION [None]
  - INCOHERENT [None]
  - PALPITATIONS [None]
  - TREMOR [None]
  - VOMITING [None]
